FAERS Safety Report 21617096 (Version 2)
Quarter: 2022Q4

REPORT INFORMATION
  Report Type: Spontaneous
  Country: IT (occurrence: IT)
  Receive Date: 20221118
  Receipt Date: 20221122
  Transmission Date: 20230113
  Serious: Yes (Death, Other)
  Sender: FDA-Public Use
  Company Number: None

PATIENT
  Age: 69 Year
  Sex: Male
  Weight: 66 kg

DRUGS (1)
  1. TECARTUS [Suspect]
     Active Substance: BREXUCABTAGENE AUTOLEUCEL
     Indication: Mantle cell lymphoma recurrent
     Dosage: 1 DOSAGE FORM
     Route: 065
     Dates: start: 20210308, end: 20210308

REACTIONS (2)
  - Infarction [Fatal]
  - Septic shock [Fatal]

NARRATIVE: CASE EVENT DATE: 20210330
